FAERS Safety Report 6831973-5 (Version None)
Quarter: 2010Q3

REPORT INFORMATION
  Report Type: 
  Country: None (occurrence: None)
  Receive Date: 20100712
  Receipt Date: 20100324
  Transmission Date: 20110219
  Serious: No
  Sender: FDA-Public Use
  Company Number: US-TYCO HEALTHCARE/MALLINCKRODT-T201000896

PATIENT

DRUGS (4)
  1. OXYCODONE HCL AND ACETAMINOPHEN [Suspect]
     Indication: PAIN
     Dosage: 1-2 TABLETS, EVERY 4-6 HOURS, PRN
     Route: 048
     Dates: start: 20100319, end: 20100324
  2. LEVOTHYROXINE [Concomitant]
     Indication: THYROID MASS
     Dosage: UNK
  3. PROTONIX [Concomitant]
     Indication: ULCER
     Dosage: UNK
  4. CRESTOR [Concomitant]
     Indication: BLOOD CHOLESTEROL
     Dosage: UNK

REACTIONS (4)
  - DRUG EFFECT DECREASED [None]
  - HEADACHE [None]
  - PRODUCT SUBSTITUTION ISSUE [None]
  - PRODUCT TASTE ABNORMAL [None]
